FAERS Safety Report 22108330 (Version 1)
Quarter: 2023Q1

REPORT INFORMATION
  Report Type: Spontaneous
  Country: GR (occurrence: GR)
  Receive Date: 20230317
  Receipt Date: 20230317
  Transmission Date: 20230418
  Serious: Yes (Death, Life-Threatening, Hospitalization, Other)
  Sender: FDA-Public Use
  Company Number: GR-BoehringerIngelheim-2023-BI-224827

PATIENT
  Sex: Male

DRUGS (3)
  1. NINTEDANIB [Suspect]
     Active Substance: NINTEDANIB
     Indication: Interstitial lung disease
  2. PREDNISOLONE [Concomitant]
     Active Substance: PREDNISOLONE
     Indication: Fanconi syndrome
     Route: 048
  3. PREDNISOLONE [Concomitant]
     Active Substance: PREDNISOLONE
     Indication: Interstitial lung disease

REACTIONS (8)
  - Death [Fatal]
  - Respiratory failure [Unknown]
  - Dyspnoea [Unknown]
  - Pyrexia [Unknown]
  - Productive cough [Unknown]
  - Gastrointestinal disorder [Unknown]
  - Renal impairment [Unknown]
  - Diarrhoea [Unknown]
